FAERS Safety Report 19533750 (Version 2)
Quarter: 2021Q3

REPORT INFORMATION
  Report Type: Spontaneous
  Country: IT (occurrence: IT)
  Receive Date: 20210713
  Receipt Date: 20210729
  Transmission Date: 20211014
  Serious: Yes (Other)
  Sender: FDA-Public Use
  Company Number: IT-SA-2021SA227887

PATIENT
  Age: 1 Year
  Sex: Female

DRUGS (2)
  1. PARACETAMOL [Suspect]
     Active Substance: ACETAMINOPHEN
     Indication: PYREXIA
     Dosage: 5 ML, QD
     Route: 048
     Dates: start: 20210511, end: 20210512
  2. CETIRIZINE HYDROCHLORIDE. [Suspect]
     Active Substance: CETIRIZINE HYDROCHLORIDE
     Indication: RHINITIS ALLERGIC
     Dosage: 10 MG, QD
     Route: 048
     Dates: start: 20210511, end: 20210512

REACTIONS (2)
  - Product use issue [Unknown]
  - Cyanosis [Recovering/Resolving]

NARRATIVE: CASE EVENT DATE: 20210511
